FAERS Safety Report 20478426 (Version 1)
Quarter: 2022Q1

REPORT INFORMATION
  Report Type: Spontaneous
  Country: DK (occurrence: DK)
  Receive Date: 20220216
  Receipt Date: 20220216
  Transmission Date: 20220424
  Serious: Yes (Hospitalization)
  Sender: FDA-Public Use
  Company Number: None

PATIENT
  Age: 82 Year
  Sex: Female

DRUGS (5)
  1. PREDNISOLONE [Suspect]
     Active Substance: PREDNISOLONE
     Indication: Acute respiratory distress syndrome
     Dosage: STRENGTH: 25 MG, UNIT DOSE: 25 MG
     Route: 048
     Dates: start: 20211122
  2. PREDNISOLONE [Suspect]
     Active Substance: PREDNISOLONE
     Indication: Acute respiratory distress syndrome
     Dosage: STRENGTH: 5 MG, UNIT DOSE 10MG
     Route: 048
     Dates: start: 20211122
  3. AMLODIPINE BESYLATE [Concomitant]
     Active Substance: AMLODIPINE BESYLATE
     Indication: Hypertension
     Dates: start: 20211028, end: 20211209
  4. CLOPIDOGREL BISULFATE [Concomitant]
     Active Substance: CLOPIDOGREL BISULFATE
     Indication: Embolism
     Dates: start: 2020
  5. DULOXETIN ^STADA^ [Concomitant]
     Indication: Depression
     Dates: start: 20210820

REACTIONS (7)
  - Depression [Unknown]
  - Haematemesis [Recovering/Resolving]
  - Diarrhoea [Unknown]
  - Faeces discoloured [Unknown]
  - Internal haemorrhage [Unknown]
  - Duodenal ulcer [Recovering/Resolving]
  - Malaise [Unknown]

NARRATIVE: CASE EVENT DATE: 20211101
